FAERS Safety Report 7679109-5 (Version None)
Quarter: 2011Q3

REPORT INFORMATION
  Report Type: 
  Country: None (occurrence: None)
  Receive Date: 20110812
  Receipt Date: 20110805
  Transmission Date: 20111222
  Serious: Yes (Death, Hospitalization)
  Sender: FDA-Public Use
  Company Number: US-CELGENEUS-163-CCAZA-11080450

PATIENT
  Sex: Female
  Weight: 46.1 kg

DRUGS (27)
  1. CALCIUM GLUCONATE [Concomitant]
     Dosage: 2 GRAM
     Route: 041
  2. LORAZEPAM [Concomitant]
     Dosage: .5 MILLIGRAM
     Route: 041
  3. SENNA [Concomitant]
     Indication: CONSTIPATION
     Dosage: 8.6 MILLIGRAM
     Route: 048
     Dates: start: 20101101
  4. METOPROLOL TARTRATE [Concomitant]
     Route: 048
  5. SODIUM BICARBONATE [Concomitant]
     Dosage: 50 MILLIEQUIVALENTS
     Route: 041
  6. AZACITIDINE [Suspect]
     Indication: UTERINE CANCER
     Dosage: 100 MILLIGRAM/SQ. METER
     Route: 058
     Dates: start: 20110614, end: 20110614
  7. AZACITIDINE [Suspect]
     Dosage: 75 MILLIGRAM/SQ. METER
     Route: 058
     Dates: start: 20110725, end: 20110725
  8. PATADAY [Concomitant]
     Indication: SEASONAL ALLERGY
     Dosage: .2 PERCENT
     Route: 047
     Dates: start: 20110509
  9. ALBUMIN (HUMAN) [Concomitant]
     Dosage: 250 MILLILITER
     Route: 041
  10. ASPIRIN [Concomitant]
     Dosage: 325 MILLIGRAM
     Route: 048
  11. DEXTROSE 50% [Concomitant]
     Dosage: 25 GRAM
     Route: 041
  12. MORPHINE SULFATE [Concomitant]
     Route: 041
  13. PIPERACILLIN/TAZOBACTAM/DEXTROSE [Concomitant]
     Route: 041
  14. BACITRACIN ZINC [Concomitant]
     Dosage: 1 APPLICATION
     Route: 061
  15. OXYCODONE HCL AND ACETAMINOPHEN [Concomitant]
     Dosage: 2 TABLET
     Route: 048
  16. SCOPOLAMINE [Concomitant]
     Route: 062
  17. COMPAZINE [Concomitant]
     Indication: NAUSEA
     Dosage: 10 MILLIGRAM
     Route: 048
     Dates: start: 20101101
  18. VANCOMYCIN [Concomitant]
     Route: 041
  19. HEPARIN [Concomitant]
     Dosage: 5000 UNIT
     Route: 058
  20. COLACE [Concomitant]
     Indication: CONSTIPATION
     Dosage: 100 MILLIGRAM
     Route: 048
     Dates: start: 20101101
  21. SLOW MAG [Concomitant]
     Indication: SUPPLEMENTATION THERAPY
     Dosage: 2 TABLET
     Route: 048
     Dates: start: 20101101
  22. FENTANYL CITRATE [Concomitant]
     Dosage: 5000MCG/250ML
     Route: 041
  23. KAYEXALATE [Concomitant]
     Dosage: 30 GRAM
     Route: 065
  24. ONDANSERTRON HYDROCHLORIDE [Concomitant]
     Dosage: 4 MILLIGRAM
     Route: 041
  25. CALCIUM CARBONATE [Concomitant]
     Indication: SUPPLEMENTATION THERAPY
     Dosage: 1 TABLET
     Route: 048
     Dates: start: 20101101
  26. INSULIN [Concomitant]
     Dosage: 10 UNIT
     Route: 041
  27. PANTOPRAZOLE SODIUM [Concomitant]
     Route: 041

REACTIONS (4)
  - RENAL FAILURE ACUTE [None]
  - BACK PAIN [None]
  - HYPONATRAEMIA [None]
  - HYPERKALAEMIA [None]
